FAERS Safety Report 26172925 (Version 1)
Quarter: 2025Q4

REPORT INFORMATION
  Report Type: Spontaneous
  Country: CA (occurrence: CA)
  Receive Date: 20251218
  Receipt Date: 20251218
  Transmission Date: 20260118
  Serious: Yes (Other)
  Sender: APOTEX
  Company Number: CA-PGRTD-001155856

PATIENT
  Age: 42 Year
  Sex: Female
  Weight: 56.688 kg

DRUGS (3)
  1. ARIPIPRAZOLE [Suspect]
     Active Substance: ARIPIPRAZOLE
     Indication: Schizophrenia
     Dosage: 5 MILLIGRAM, QD
     Route: 061
  2. LACTASE [Concomitant]
     Active Substance: LACTASE
     Dosage: UNK
     Route: 065
  3. VITAMINS [Concomitant]
     Active Substance: VITAMINS
     Route: 065

REACTIONS (9)
  - Goitre [Recovered/Resolved]
  - Sinus congestion [Recovered/Resolved]
  - Suggestibility [Recovered/Resolved]
  - Judgement impaired [Recovered/Resolved]
  - Muscle twitching [Recovered/Resolved]
  - Headache [Recovered/Resolved]
  - Sedation [Recovered/Resolved]
  - Somnolence [Recovered/Resolved]
  - Restlessness [Recovered/Resolved]
